FAERS Safety Report 8463098-X (Version None)
Quarter: 2012Q2

REPORT INFORMATION
  Report Type: 
  Country: None (occurrence: None)
  Receive Date: 20120323
  Receipt Date: 20111121
  Transmission Date: 20120825
  Serious: Yes (Hospitalization, Disabling)
  Sender: FDA-Public Use
  Company Number: 163-21880-11090054

PATIENT
  Age: 81 Year
  Sex: Male

DRUGS (6)
  1. FLUIDS (I.V. SOLUTIONS) [Concomitant]
     Dates: start: 20110701
  2. LENALIDOMIDE [Suspect]
     Dosage: 10 MG, EVERY OTHER DAY, PO
     Dates: start: 20110802
  3. LENALIDOMIDE [Suspect]
     Indication: 5Q MINUS SYNDROME
     Dosage: 10 MG, DAILY, PO
     Dates: start: 20110802
  4. LENALIDOMIDE [Suspect]
     Indication: 5Q MINUS SYNDROME
     Dosage: 10 MG, DAILY, PO
     Dates: start: 20110728
  5. LENALIDOMIDE [Suspect]
     Indication: 5Q MINUS SYNDROME
     Dosage: 10 MG, DAILY, PO
     Dates: start: 20110708, end: 20110714
  6. LENALIDOMIDE [Suspect]
     Dosage: 10 MG, DAILY, PO
     Dates: start: 20110728

REACTIONS (1)
  - DIVERTICULITIS [None]
